FAERS Safety Report 16723202 (Version 1)
Quarter: 2019Q3

REPORT INFORMATION
  Report Type: Report from Study
  Country: None (occurrence: US)
  Receive Date: 20190821
  Receipt Date: 20190821
  Transmission Date: 20191005
  Serious: Yes (Other)
  Sender: FDA-Public Use
  Company Number: US-ABBVIE-19K-163-2884717-00

PATIENT
  Age: 54 Year
  Sex: Female

DRUGS (1)
  1. HUMIRA [Suspect]
     Active Substance: ADALIMUMAB
     Indication: PSORIASIS
     Route: 058

REACTIONS (4)
  - Meniscus injury [Recovering/Resolving]
  - Procedural pain [Not Recovered/Not Resolved]
  - Ligament rupture [Recovering/Resolving]
  - Stress fracture [Recovering/Resolving]

NARRATIVE: CASE EVENT DATE: 20190808
